FAERS Safety Report 5079451-0 (Version None)
Quarter: 2006Q3

REPORT INFORMATION
  Report Type: 
  Country: None (occurrence: None)
  Receive Date: 20060814
  Receipt Date: 20060801
  Transmission Date: 20061208
  Serious: Yes (Other)
  Sender: FDA-Public Use
  Company Number: US-ROCHE-458099

PATIENT
  Sex: Male

DRUGS (5)
  1. FUZEON [Suspect]
     Dosage: FORM REPORTED AS VIAL.
     Route: 058
     Dates: start: 20060515
  2. TMC114 [Suspect]
     Route: 048
     Dates: start: 20060515
  3. CYCLOVIR [Concomitant]
     Route: 048
  4. EPZICOM [Concomitant]
     Route: 048
  5. SEPTRA [Concomitant]
     Route: 048

REACTIONS (1)
  - LEUKAEMIA [None]
